FAERS Safety Report 11200316 (Version 2)
Quarter: 2015Q2

REPORT INFORMATION
  Report Type: Spontaneous
  Country: US (occurrence: US)
  Receive Date: 20150618
  Receipt Date: 20150625
  Transmission Date: 20150821
  Serious: Yes (Death)
  Sender: FDA-Public Use
  Company Number: US-PFIZER INC-2015199892

PATIENT
  Age: 76 Year
  Sex: Female

DRUGS (4)
  1. DIGOXIN. [Concomitant]
     Active Substance: DIGOXIN
     Dosage: 0.25 MG, DAILY
  2. INH [Concomitant]
     Active Substance: ISONIAZID
     Dosage: 100 MG, 3X/DAY
  3. PIRIDOXINA [Concomitant]
     Dosage: 50 MG, DAILY
  4. PHENYTOIN SODIUM. [Suspect]
     Active Substance: PHENYTOIN SODIUM
     Indication: TOXICITY TO VARIOUS AGENTS
     Dosage: 100 MG, OVER A THREE MINUTE PERIOD
     Route: 042

REACTIONS (2)
  - Product use issue [Fatal]
  - Cardiac arrest [Fatal]
